FAERS Safety Report 11969536 (Version 1)
Quarter: 2016Q1

REPORT INFORMATION
  Report Type: Spontaneous
  Country: DE (occurrence: DE)
  Receive Date: 20160128
  Receipt Date: 20160128
  Transmission Date: 20160526
  Serious: Yes (Other)
  Sender: FDA-Public Use
  Company Number: DE-WATSON-2016-00896

PATIENT
  Age: 14 Year
  Sex: Male

DRUGS (6)
  1. RITUXIMAB [Suspect]
     Active Substance: RITUXIMAB
     Indication: HODGKIN^S DISEASE STAGE III
     Dosage: 375 MG/M2, D2, INFUSION OVER 10 HR
     Route: 042
  2. PROCARBAZINE [Suspect]
     Active Substance: PROCARBAZINE
     Indication: HODGKIN^S DISEASE STAGE III
     Dosage: 100 MG/M2, Q2-3 D1-15
     Route: 048
  3. BRENTUXIMAB VEDOTIN [Concomitant]
     Active Substance: BRENTUXIMAB VEDOTIN
     Indication: HODGKIN^S DISEASE STAGE III
     Dosage: 50 MG, 1/ THREE WEEKS
     Route: 042
  4. PREDNISONE (UNKNOWN) [Suspect]
     Active Substance: PREDNISONE
     Indication: HODGKIN^S DISEASE STAGE III
     Dosage: 40 MG/M2, Q3 D1-15
     Route: 048
  5. CYCLOPHOSPHAMIDE. [Suspect]
     Active Substance: CYCLOPHOSPHAMIDE
     Indication: HODGKIN^S DISEASE STAGE III
     Dosage: 333 MG/M2, D1 + 8, 30-60 MIN INFUSION
     Route: 042
  6. VINCRISTINE (UNKNOWN) [Suspect]
     Active Substance: VINCRISTINE
     Indication: HODGKIN^S DISEASE STAGE III
     Dosage: 1.5 MG/M2, D1 + 8, 30 MIN INFUSION
     Route: 042

REACTIONS (9)
  - Anaemia [Unknown]
  - Weight decreased [Unknown]
  - Febrile neutropenia [Unknown]
  - Dysphemia [Unknown]
  - Coordination abnormal [Unknown]
  - Oral candidiasis [Recovered/Resolved]
  - Platelet count decreased [Unknown]
  - Gastroenteritis [Unknown]
  - Condition aggravated [Unknown]
